FAERS Safety Report 6856417-9 (Version None)
Quarter: 2010Q3

REPORT INFORMATION
  Report Type: 
  Country: None (occurrence: None)
  Receive Date: 20100719
  Receipt Date: 20100713
  Transmission Date: 20110219
  Serious: Yes (Hospitalization)
  Sender: FDA-Public Use
  Company Number: US-ELI_LILLY_AND_COMPANY-US201007003236

PATIENT
  Age: 61 Year
  Sex: Female

DRUGS (3)
  1. PRASUGREL HYDROCHLORIDE [Suspect]
     Indication: ACUTE CORONARY SYNDROME
     Dosage: 60 MG, UNK
     Dates: start: 20100615, end: 20100615
  2. PRASUGREL HYDROCHLORIDE [Suspect]
     Dosage: 10 MG, UNK
     Dates: start: 20100615
  3. ASPIRIN [Concomitant]
     Dosage: 81 MG, UNK
     Dates: start: 20100615

REACTIONS (1)
  - SYNCOPE [None]
